FAERS Safety Report 4647403-8 (Version None)
Quarter: 2005Q2

REPORT INFORMATION
  Report Type: 
  Country: None (occurrence: None)
  Receive Date: 20050427
  Receipt Date: 20050427
  Transmission Date: 20051028
  Serious: No
  Sender: FDA-Public Use
  Company Number: None

PATIENT
  Age: 72 Year
  Sex: Male
  Weight: 115 kg

DRUGS (1)
  1. TEQUIN [Suspect]
     Indication: LOCALISED INFECTION
     Dosage: 400 MG PO ONCE DAILY
     Route: 048

REACTIONS (1)
  - BLOOD GLUCOSE DECREASED [None]
